FAERS Safety Report 5804616-7 (Version None)
Quarter: 2008Q3

REPORT INFORMATION
  Report Type: 
  Country: None (occurrence: None)
  Receive Date: 20080707
  Receipt Date: 20080707
  Transmission Date: 20090109
  Serious: Yes (Hospitalization)
  Sender: FDA-Public Use
  Company Number: None

PATIENT
  Sex: Male
  Weight: 78.47 kg

DRUGS (1)
  1. CISPLATIN [Suspect]
     Dosage: 193 MG
     Dates: end: 20080617

REACTIONS (3)
  - DEHYDRATION [None]
  - DYSPHAGIA [None]
  - MUCOSAL INFLAMMATION [None]
